FAERS Safety Report 6295344-5 (Version None)
Quarter: 2009Q3

REPORT INFORMATION
  Report Type: 
  Country: None (occurrence: None)
  Receive Date: 20090730
  Receipt Date: 20090720
  Transmission Date: 20100115
  Serious: Yes (Hospitalization)
  Sender: FDA-Public Use
  Company Number: ADR11112009(DK-DKMA-20091962)

PATIENT
  Sex: Female

DRUGS (3)
  1. ALENDRONIC ACID (MFR: UNKNOWN) [Suspect]
     Indication: OSTEOPOROSIS PROPHYLAXIS
     Dosage: 70 MG, ORAL
     Route: 048
     Dates: start: 20090616, end: 20090617
  2. PREDNISOLON-5MG [Concomitant]
  3. METHOTREXAT-25MG [Concomitant]

REACTIONS (1)
  - PYELONEPHRITIS [None]
